FAERS Safety Report 24126097 (Version 1)
Quarter: 2024Q3

REPORT INFORMATION
  Report Type: Spontaneous
  Country: US (occurrence: None)
  Receive Date: 20240721
  Receipt Date: 20240721
  Transmission Date: 20241016
  Serious: Yes (Other)
  Sender: Public
  Company Number: None

PATIENT
  Age: 67 Year
  Sex: Female
  Weight: 88.2 kg

DRUGS (9)
  1. LEQVIO [Suspect]
     Active Substance: INCLISIRAN SODIUM
     Indication: Blood cholesterol increased
     Dosage: OTHER QUANTITY : 1 INJECTION(S);?OTHER FREQUENCY : EVERY 6 MONTHS;?
     Route: 058
     Dates: start: 20230501, end: 20240402
  2. LEQVIO [Suspect]
     Active Substance: INCLISIRAN SODIUM
     Indication: Drug intolerance
  3. LISINOPRIL [Concomitant]
  4. ZOLOFT [Concomitant]
     Active Substance: SERTRALINE HYDROCHLORIDE
  5. AMBIEN [Concomitant]
  6. Wellbutrin ameoderp vit e [Concomitant]
  7. turmeric [Concomitant]
  8. glucosamine chondoitiin [Concomitant]
  9. milk thistle [Concomitant]

REACTIONS (3)
  - Injection site rash [None]
  - Arthralgia [None]
  - Therapy cessation [None]

NARRATIVE: CASE EVENT DATE: 20240402
